FAERS Safety Report 20814768 (Version 3)
Quarter: 2022Q2

REPORT INFORMATION
  Report Type: Spontaneous
  Country: JP (occurrence: JP)
  Receive Date: 20220511
  Receipt Date: 20220629
  Transmission Date: 20220721
  Serious: No
  Sender: FDA-Public Use
  Company Number: JP-PFIZER INC-202200581808

PATIENT
  Sex: Male

DRUGS (1)
  1. GENOTROPIN [Suspect]
     Active Substance: SOMATROPIN
     Dosage: UNK
     Route: 058

REACTIONS (4)
  - Device use error [Unknown]
  - Poor quality device used [Unknown]
  - Device breakage [Unknown]
  - Device leakage [Unknown]
